FAERS Safety Report 15727165 (Version 1)
Quarter: 2018Q4

REPORT INFORMATION
  Report Type: Report from Study
  Country: None (occurrence: TR)
  Receive Date: 20181217
  Receipt Date: 20181217
  Transmission Date: 20190205
  Serious: Yes (Hospitalization)
  Sender: FDA-Public Use
  Company Number: TR-ABBVIE-18S-161-2592476-00

PATIENT
  Age: 79 Year
  Sex: Male
  Weight: 64 kg

DRUGS (5)
  1. DUODOPA [Suspect]
     Active Substance: CARBIDOPA\LEVODOPA
     Indication: PARKINSON^S DISEASE
     Dosage: MD: 8.00 ML CD: 3.00 ML ED: 1.00 ML
     Route: 050
     Dates: start: 20170314
  2. UROREC [Concomitant]
     Active Substance: SILODOSIN
     Indication: INCONTINENCE
     Route: 050
     Dates: start: 2015
  3. MOTILIUM [Concomitant]
     Active Substance: DOMPERIDONE
     Indication: PARKINSON^S DISEASE
     Route: 050
     Dates: start: 2017
  4. MADOPAR HBS [Concomitant]
     Active Substance: BENSERAZIDE HYDROCHLORIDE\LEVODOPA
     Indication: PARKINSON^S DISEASE
     Route: 050
     Dates: start: 2017
  5. EFEXOR [Concomitant]
     Active Substance: VENLAFAXINE HYDROCHLORIDE
     Indication: PARKINSON^S DISEASE
     Route: 050
     Dates: start: 2007

REACTIONS (5)
  - Confusional state [Not Recovered/Not Resolved]
  - Pneumonia [Not Recovered/Not Resolved]
  - C-reactive protein increased [Unknown]
  - Encephalitis [Not Recovered/Not Resolved]
  - Hyponatraemia [Not Recovered/Not Resolved]

NARRATIVE: CASE EVENT DATE: 20181111
